FAERS Safety Report 18294799 (Version 9)
Quarter: 2022Q2

REPORT INFORMATION
  Report Type: Spontaneous
  Country: US (occurrence: US)
  Receive Date: 20200922
  Receipt Date: 20220517
  Transmission Date: 20220721
  Serious: Yes (Hospitalization, Other)
  Sender: FDA-Public Use
  Company Number: US-GLOBAL BLOOD THERAPEUTICS INC-US-GBT-20-01579

PATIENT
  Age: 47 Year
  Sex: Female

DRUGS (6)
  1. OXBRYTA [Suspect]
     Active Substance: VOXELOTOR
     Indication: Sickle cell disease
     Route: 048
     Dates: start: 20200321, end: 20200609
  2. OXBRYTA [Suspect]
     Active Substance: VOXELOTOR
     Route: 048
     Dates: start: 20200811, end: 202109
  3. OXBRYTA [Suspect]
     Active Substance: VOXELOTOR
     Route: 048
     Dates: start: 202109
  4. OXBRYTA [Suspect]
     Active Substance: VOXELOTOR
     Route: 048
  5. JIVI [Suspect]
     Active Substance: DAMOCTOCOG ALFA PEGOL
     Indication: Product used for unknown indication
     Dosage: 2000 UNITS
  6. WHOLE BLOOD [Concomitant]
     Active Substance: WHOLE BLOOD
     Indication: Sickle cell disease
     Dosage: ONE UNIT
     Dates: start: 20201211, end: 20201211

REACTIONS (7)
  - Sickle cell anaemia with crisis [Unknown]
  - Osteonecrosis [Unknown]
  - Cholelithiasis [Recovered/Resolved]
  - Sickle cell anaemia with crisis [Recovering/Resolving]
  - Abdominal discomfort [Unknown]
  - Diarrhoea [Recovering/Resolving]
  - Product dose omission issue [Unknown]

NARRATIVE: CASE EVENT DATE: 20200529
